FAERS Safety Report 5953201-5 (Version None)
Quarter: 2008Q4

REPORT INFORMATION
  Report Type: 
  Country: None (occurrence: None)
  Receive Date: 20081114
  Receipt Date: 20081106
  Transmission Date: 20090506
  Serious: Yes (Other)
  Sender: FDA-Public Use
  Company Number: US-ABBOTT-08P-163-0485933-00

PATIENT
  Sex: Female
  Weight: 51.756 kg

DRUGS (4)
  1. HUMIRA [Suspect]
     Indication: CROHN'S DISEASE
     Route: 058
     Dates: start: 20081015
  2. BUDESONIDE [Concomitant]
     Indication: CROHN'S DISEASE
     Route: 048
  3. CYANOCOBALAMIN [Concomitant]
     Indication: CROHN'S DISEASE
     Route: 058
  4. FOLIC ACID [Concomitant]
     Indication: ANAEMIA
     Route: 048

REACTIONS (7)
  - ANAEMIA [None]
  - INJECTION SITE ERYTHEMA [None]
  - INJECTION SITE HAEMATOMA [None]
  - INJECTION SITE NODULE [None]
  - INJECTION SITE PAPULE [None]
  - INJECTION SITE REACTION [None]
  - PAIN IN EXTREMITY [None]
